FAERS Safety Report 6367316-3 (Version None)
Quarter: 2009Q3

REPORT INFORMATION
  Report Type: 
  Country: None (occurrence: None)
  Receive Date: 20090921
  Receipt Date: 20090708
  Transmission Date: 20100115
  Serious: Yes (Death, Hospitalization)
  Sender: FDA-Public Use
  Company Number: US-PFIZER INC-2009238181

PATIENT
  Age: 44 Year
  Sex: Female
  Weight: 109 kg

DRUGS (2)
  1. SUNITINIB MALATE [Suspect]
     Indication: NON-SMALL CELL LUNG CANCER
     Dosage: 37.5 MG, 1X/DAY, EVERY 21 DAYS
     Route: 048
     Dates: start: 20090420, end: 20090616
  2. PEMETREXED [Suspect]
     Indication: NON-SMALL CELL LUNG CANCER
     Dosage: 500 MG/M2, OVER 10 MIN ON DAY 1
     Route: 042
     Dates: start: 20090420, end: 20090602

REACTIONS (1)
  - MYOCARDIAL INFARCTION [None]
